FAERS Safety Report 4390500-5 (Version None)
Quarter: 2004Q2

REPORT INFORMATION
  Report Type: 
  Country: None (occurrence: None)
  Receive Date: 20040630
  Receipt Date: 20040630
  Transmission Date: 20050107
  Serious: Yes (Hospitalization, Other)
  Sender: FDA-Public Use
  Company Number: None

PATIENT
  Age: 68 Year
  Sex: Male
  Weight: 91.7 kg

DRUGS (11)
  1. INTEGRILIN [Suspect]
     Indication: ANTIPLATELET THERAPY
     Dosage: 2(8.5 ML BOLUSES)7.5 ML/HR IV
     Route: 042
     Dates: start: 20040624, end: 20040624
  2. HEPARIN [Suspect]
     Indication: THROMBOSIS PROPHYLAXIS
     Dosage: 4590 UNITS IV
     Route: 042
     Dates: start: 20040624
  3. MIDAZOLAM HCL [Concomitant]
  4. NITROGLYCERIN [Concomitant]
  5. SODIUM NITROPRUSSIDE [Concomitant]
  6. FENTANYL [Concomitant]
  7. ASPIRIN [Concomitant]
  8. PEPCID [Concomitant]
  9. REGULAR INSULIN [Concomitant]
  10. ACETYLCYSTEINE [Concomitant]
  11. PLAVIX [Concomitant]

REACTIONS (4)
  - ECCHYMOSIS [None]
  - POST PROCEDURAL COMPLICATION [None]
  - POST PROCEDURAL HAEMATOMA [None]
  - VASCULAR PSEUDOANEURYSM [None]
